FAERS Safety Report 14243455 (Version 1)
Quarter: 2017Q4

REPORT INFORMATION
  Report Type: Spontaneous
  Country: CA (occurrence: CA)
  Receive Date: 20171201
  Receipt Date: 20171201
  Transmission Date: 20180321
  Serious: Yes (Other)
  Sender: FDA-Public Use
  Company Number: CA-HIKMA PHARMACEUTICALS CO. LTD-2017CA016532

PATIENT

DRUGS (8)
  1. ATIVAN [Concomitant]
     Active Substance: LORAZEPAM
     Dosage: 1 MG, UNK, AS NEEDED
     Route: 060
  2. PREDNISONE. [Concomitant]
     Active Substance: PREDNISONE
     Dosage: 5MG/TABLET - 8 TABLETS DAILY
     Route: 048
  3. INFLECTRA [Suspect]
     Active Substance: INFLIXIMAB-DYYB
     Indication: COLITIS ULCERATIVE
     Dosage: 7.5MG/KG DAY 0 THEN, 700 MG, EVERY 2, 6 THEN EVERY 8 WEEKS
     Route: 042
     Dates: start: 20171118
  4. VENTOLIN [Concomitant]
     Active Substance: ALBUTEROL SULFATE
     Dosage: 2 PUFFS FOUR TIMES DAILY, AS NEEDED
  5. ASACOL [Concomitant]
     Active Substance: MESALAMINE
     Dosage: 800 MG, TID
     Route: 048
  6. SOLU-MEDROL [Suspect]
     Active Substance: METHYLPREDNISOLONE SODIUM SUCCINATE
     Indication: PRODUCT USED FOR UNKNOWN INDICATION
     Dosage: 40 MG, BID
     Route: 042
     Dates: start: 20171118, end: 20171118
  7. TELMISARTAN + HIDROCLOROTIAZIDA SANDOZ [Concomitant]
     Dosage: 80/12.5 MG DAILY
     Route: 048
  8. OMEPRAZOLE. [Concomitant]
     Active Substance: OMEPRAZOLE
     Dosage: 200 MG, DAILY
     Route: 048

REACTIONS (3)
  - Frequent bowel movements [Unknown]
  - Drug effect incomplete [Unknown]
  - Rectal haemorrhage [Not Recovered/Not Resolved]
